FAERS Safety Report 22936212 (Version 2)
Quarter: 2023Q4

REPORT INFORMATION
  Report Type: Spontaneous
  Country: AU (occurrence: AU)
  Receive Date: 20230912
  Receipt Date: 20231003
  Transmission Date: 20240110
  Serious: Yes (Other)
  Sender: FDA-Public Use
  Company Number: AU-ABBVIE-5400851

PATIENT
  Sex: Male

DRUGS (1)
  1. OZURDEX [Suspect]
     Active Substance: DEXAMETHASONE
     Indication: Cystoid macular oedema
     Dosage: TIME INTERVAL: AS NECESSARY
     Route: 031
     Dates: start: 202309, end: 202309

REACTIONS (3)
  - Vision blurred [Unknown]
  - Device dislocation [Unknown]
  - Corneal opacity [Unknown]

NARRATIVE: CASE EVENT DATE: 20230901
